FAERS Safety Report 7225033-1 (Version None)
Quarter: 2011Q1

REPORT INFORMATION
  Report Type: 
  Country: None (occurrence: None)
  Receive Date: 20110113
  Receipt Date: 20110103
  Transmission Date: 20110831
  Serious: Yes (Hospitalization)
  Sender: FDA-Public Use
  Company Number: US-MYLANLABS-2011S1000101

PATIENT
  Age: 17 Year
  Sex: Male

DRUGS (3)
  1. PREDNISONE [Suspect]
     Indication: ACNE
     Route: 048
     Dates: start: 20101210
  2. PREDNISONE [Suspect]
     Route: 048
     Dates: end: 20101215
  3. AMNESTEEM [Suspect]
     Indication: ACNE
     Route: 048
     Dates: start: 20101210, end: 20101215

REACTIONS (3)
  - HEADACHE [None]
  - CEREBRAL ARTERY EMBOLISM [None]
  - PULMONARY EMBOLISM [None]
